FAERS Safety Report 12532216 (Version 1)
Quarter: 2016Q3

REPORT INFORMATION
  Report Type: Spontaneous
  Country: TR (occurrence: TR)
  Receive Date: 20160706
  Receipt Date: 20160706
  Transmission Date: 20161109
  Serious: Yes (Death)
  Sender: FDA-Public Use
  Company Number: TR-FRESENIUS KABI-FK201604148

PATIENT
  Age: 78 Year
  Sex: Male

DRUGS (3)
  1. CYCLOPHOSPHAMIDE (MANUFACTURER UNKNOWN) [Suspect]
     Active Substance: CYCLOPHOSPHAMIDE
     Indication: PLASMA CELL MYELOMA
     Route: 065
  2. DEXAMETHASONE INJECTION (MANUFACTURER UNKNOWN) [Suspect]
     Active Substance: DEXAMETHASONE
     Indication: PLASMA CELL MYELOMA
     Route: 065
  3. BORTEZOMIB [Suspect]
     Active Substance: BORTEZOMIB
     Indication: PLASMA CELL MYELOMA

REACTIONS (1)
  - Microsporidia infection [Fatal]
